FAERS Safety Report 13091005 (Version 1)
Quarter: 2017Q1

REPORT INFORMATION
  Report Type: Spontaneous
  Country: GB (occurrence: GB)
  Receive Date: 20170106
  Receipt Date: 20170106
  Transmission Date: 20170428
  Serious: Yes (Hospitalization)
  Sender: FDA-Public Use
  Company Number: GB-ACCORD-047024

PATIENT
  Age: 68 Year
  Sex: Female
  Weight: 59.25 kg

DRUGS (7)
  1. BISOPROLOL [Concomitant]
     Active Substance: BISOPROLOL
  2. ATORVASTATIN [Concomitant]
     Active Substance: ATORVASTATIN
  3. ACETYLSALICYLIC ACID [Concomitant]
     Active Substance: ASPIRIN
  4. FOLIC ACID. [Concomitant]
     Active Substance: FOLIC ACID
  5. LANSOPRAZOLE. [Concomitant]
     Active Substance: LANSOPRAZOLE
  6. METHOTREXATE. [Suspect]
     Active Substance: METHOTREXATE
     Indication: RHEUMATOID ARTHRITIS
     Dosage: ACCIDENTALLY TOOK MTX 5 MG/D THEN INCREASED TO 15 MG/D DUE TO MISUNDERSTANDING THE DOSING REGIME
     Route: 048
     Dates: start: 20161129, end: 20161216
  7. PHENOXYMETHYLPENICILLIN [Concomitant]
     Active Substance: PENICILLIN V

REACTIONS (12)
  - Accidental overdose [Unknown]
  - Diarrhoea haemorrhagic [Unknown]
  - Petechiae [Unknown]
  - Oral candidiasis [Unknown]
  - Stomatitis [Unknown]
  - Glossodynia [Unknown]
  - Incorrect dose administered [Unknown]
  - Pancytopenia [Unknown]
  - Oropharyngeal pain [Unknown]
  - Productive cough [Unknown]
  - Lip swelling [Unknown]
  - Haematemesis [Unknown]

NARRATIVE: CASE EVENT DATE: 20161213
